FAERS Safety Report 12588090 (Version 2)
Quarter: 2016Q3

REPORT INFORMATION
  Report Type: Spontaneous
  Country: US (occurrence: US)
  Receive Date: 20160725
  Receipt Date: 20160805
  Transmission Date: 20161109
  Serious: Yes (Other)
  Sender: FDA-Public Use
  Company Number: US-BAYER-2016-143343

PATIENT
  Age: 65 Year
  Sex: Female
  Weight: 51.25 kg

DRUGS (3)
  1. PHILLIPS^ LAXATIVE DIETARY SUPPLEMENT [Suspect]
     Active Substance: MAGNESIUM OXIDE
     Indication: CONSTIPATION
     Dosage: 6 DF, QD
     Route: 048
     Dates: start: 1996
  2. VALACICLOVIR [Concomitant]
     Active Substance: VALACYCLOVIR HYDROCHLORIDE
  3. MILK OF MAGNESIA CHERRY [Suspect]
     Active Substance: MAGNESIUM HYDROXIDE
     Indication: CONSTIPATION
     Dosage: 30 ML, QD
     Route: 048

REACTIONS (4)
  - Drug dependence [None]
  - Nausea [None]
  - Retching [None]
  - Product use issue [None]
